FAERS Safety Report 6307784-6 (Version None)
Quarter: 2009Q3

REPORT INFORMATION
  Report Type: 
  Country: None (occurrence: None)
  Receive Date: 20090812
  Receipt Date: 20090812
  Transmission Date: 20100115
  Serious: Yes (Hospitalization)
  Sender: FDA-Public Use
  Company Number: None

PATIENT
  Age: 31 Year
  Sex: Male
  Weight: 70 kg

DRUGS (2)
  1. AMIODARONE HCL [Suspect]
     Indication: ARRHYTHMIA
     Dosage: 600 MG TWICE DAILY PO
     Route: 048
  2. VORICONAZOLE [Suspect]
     Indication: FUNGAL ENDOCARDITIS
     Dosage: 200 MG DAILY PO
     Route: 048

REACTIONS (2)
  - DRUG INTERACTION [None]
  - TORSADE DE POINTES [None]
